FAERS Safety Report 24659204 (Version 1)
Quarter: 2024Q4

REPORT INFORMATION
  Report Type: Spontaneous
  Country: GB (occurrence: GB)
  Receive Date: 20241125
  Receipt Date: 20241125
  Transmission Date: 20250114
  Serious: Yes (Hospitalization, Other)
  Sender: PFIZER
  Company Number: None

PATIENT
  Sex: Female
  Weight: 80 kg

DRUGS (1)
  1. DEPO-PROVERA [Suspect]
     Active Substance: MEDROXYPROGESTERONE ACETATE
     Indication: Contraception
     Dates: start: 2016

REACTIONS (2)
  - Oestrogen deficiency [Not Recovered/Not Resolved]
  - Infertility female [Not Recovered/Not Resolved]

NARRATIVE: CASE EVENT DATE: 20210601
